FAERS Safety Report 8950992 (Version 2)
Quarter: 2013Q2

REPORT INFORMATION
  Report Type: Spontaneous
  Country: FR (occurrence: FR)
  Receive Date: 20121207
  Receipt Date: 20130415
  Transmission Date: 20140414
  Serious: Yes (Hospitalization)
  Sender: FDA-Public Use
  Company Number: FR-ELI_LILLY_AND_COMPANY-FR201212001404

PATIENT
  Age: 68 Year
  Sex: Male
  Weight: 72 kg

DRUGS (2)
  1. GEMCITABINE HYDROCHLORIDE [Suspect]
     Indication: HEPATIC CANCER
     Dosage: 1000 MG/M2, OTHER
     Route: 042
  2. OXALIPLATIN [Concomitant]
     Indication: HEPATIC CANCER
     Dosage: 100 MG/M2, OTHER
     Route: 042

REACTIONS (1)
  - Oesophageal varices haemorrhage [Unknown]
